FAERS Safety Report 21168734 (Version 1)
Quarter: 2022Q3

REPORT INFORMATION
  Report Type: Spontaneous
  Country: CH (occurrence: CH)
  Receive Date: 20220803
  Receipt Date: 20220803
  Transmission Date: 20221026
  Serious: Yes (Hospitalization, Other)
  Sender: FDA-Public Use
  Company Number: None

PATIENT
  Age: 61 Year
  Sex: Female

DRUGS (25)
  1. KEYTRUDA [Suspect]
     Active Substance: PEMBROLIZUMAB
     Indication: Non-small cell lung cancer
     Dosage: KEYTRUDA? (PEMBROLIZUMAB) INTRAVENOUS APPLICATION ON 21JAN 2022 (200 MG), 11FEB2022 (200 MG), 03MAR2
     Route: 042
     Dates: start: 20220121, end: 20220121
  2. KEYTRUDA [Suspect]
     Active Substance: PEMBROLIZUMAB
     Dosage: KEYTRUDA? (PEMBROLIZUMAB) INTRAVENOUS APPLICATION ON 21JAN 2022 (200 MG), 11FEB2022 (200 MG), 03MAR2
     Route: 042
     Dates: start: 20220211, end: 20220211
  3. KEYTRUDA [Suspect]
     Active Substance: PEMBROLIZUMAB
     Dosage: KEYTRUDA? (PEMBROLIZUMAB) INTRAVENOUS APPLICATION ON 21JAN 2022 (200 MG), 11FEB2022 (200 MG), 03MAR2
     Route: 042
     Dates: start: 20220303, end: 20220303
  4. KEYTRUDA [Suspect]
     Active Substance: PEMBROLIZUMAB
     Dosage: KEYTRUDA? (PEMBROLIZUMAB) INTRAVENOUS APPLICATION ON 21JAN 2022 (200 MG), 11FEB2022 (200 MG), 03MAR2
     Route: 042
     Dates: start: 20220322, end: 20220322
  5. PIPERACILLIN SODIUM\TAZOBACTAM SODIUM [Suspect]
     Active Substance: PIPERACILLIN SODIUM\TAZOBACTAM SODIUM
     Indication: Pyrexia
     Dosage: PIPERACILLIN / TAZOBACTAM SANDOZ? INTRAVENOUS ADMINISTRATION 4.5 G EVERY 12 HOURS FROM 04MAR2022 UNT
     Route: 042
     Dates: start: 20220304, end: 20220311
  6. PIPERACILLIN SODIUM\TAZOBACTAM SODIUM [Suspect]
     Active Substance: PIPERACILLIN SODIUM\TAZOBACTAM SODIUM
     Dosage: PIPERACILLIN / TAZOBACTAM SANDOZ? INTRAVENOUS ADMINISTRATION 4.5 G EVERY 12 HOURS FROM 04MAR2022 UNT
     Route: 042
     Dates: start: 20220430, end: 20220502
  7. CARBOPLATIN [Suspect]
     Active Substance: CARBOPLATIN
     Indication: Non-small cell lung cancer
     Dosage: CARBOPLATIN INTRAVENOUS APPLICATION FROM 31DEC2021 (550 MG), 21JAN2022 (550 MG), 11FEB2022 (550 MG),
     Route: 042
     Dates: start: 20211231, end: 20211231
  8. CARBOPLATIN [Suspect]
     Active Substance: CARBOPLATIN
     Dosage: CARBOPLATIN INTRAVENOUS APPLICATION FROM 31DEC2021 (550 MG), 21JAN2022 (550 MG), 11FEB2022 (550 MG),
     Route: 042
     Dates: start: 20220121, end: 20220121
  9. CARBOPLATIN [Suspect]
     Active Substance: CARBOPLATIN
     Dosage: CARBOPLATIN INTRAVENOUS APPLICATION FROM 31DEC2021 (550 MG), 21JAN2022 (550 MG), 11FEB2022 (550 MG),
     Route: 042
     Dates: start: 20220211, end: 20220211
  10. CARBOPLATIN [Suspect]
     Active Substance: CARBOPLATIN
     Dosage: CARBOPLATIN INTRAVENOUS APPLICATION FROM 31DEC2021 (550 MG), 21JAN2022 (550 MG), 11FEB2022 (550 MG),
     Route: 042
     Dates: start: 20220303, end: 20220303
  11. TAXOL [Suspect]
     Active Substance: PACLITAXEL
     Indication: Non-small cell lung cancer
     Dosage: TAXOL? (PACLITAXEL) INTRAVENOUS APPLICATION FROM 31 DECEMBER 2021 (380 MG), 21JAN2022 (340 MG), 11FE
     Route: 042
     Dates: start: 20211231, end: 20211231
  12. TAXOL [Suspect]
     Active Substance: PACLITAXEL
     Dosage: TAXOL? (PACLITAXEL) INTRAVENOUS APPLICATION FROM 31 DECEMBER 2021 (380 MG), 21JAN2022 (340 MG), 11FE
     Route: 042
     Dates: start: 20220121, end: 20220121
  13. TAXOL [Suspect]
     Active Substance: PACLITAXEL
     Dosage: TAXOL? (PACLITAXEL) INTRAVENOUS APPLICATION FROM 31 DECEMBER 2021 (380 MG), 21JAN2022 (340 MG), 11FE
     Route: 042
     Dates: start: 20220211, end: 20220211
  14. TAXOL [Suspect]
     Active Substance: PACLITAXEL
     Dosage: TAXOL? (PACLITAXEL) INTRAVENOUS APPLICATION FROM 31 DECEMBER 2021 (380 MG), 21JAN2022 (340 MG), 11FE
     Route: 042
     Dates: start: 20220303, end: 20220303
  15. NALOXONE HYDROCHLORIDE\OXYCODONE HYDROCHLORIDE [Concomitant]
     Active Substance: NALOXONE HYDROCHLORIDE\OXYCODONE HYDROCHLORIDE
     Dosage: TARGIN? (OXYCODONE / NALOXONE) 20/10 MG TWICE DAILY (1-0-0-1), DURING HOSPITALISATION REDUCED TO 5/2
     Route: 048
  16. PANTOPRAZOLE [Concomitant]
     Active Substance: PANTOPRAZOLE
     Dosage: PANTOPRAZOLE 40 MG ONCE DAILY (1-0-0-0)
     Route: 048
  17. METOCLOPRAMIDE HYDROCHLORIDE [Concomitant]
     Active Substance: METOCLOPRAMIDE HYDROCHLORIDE
     Dosage: PASPERTIN? (METOCLOPRAMIDE) 10 MG THRICE DAILY (1-1-1-0), STOPPED
     Route: 048
  18. ZYPREXA [Concomitant]
     Active Substance: OLANZAPINE
     Dosage: ZYPREXA? (OLANZAPINE) 2.5 MG TWICE DAILY (1-0-0-1)
     Route: 048
  19. ZOLPIDEM [Concomitant]
     Active Substance: ZOLPIDEM TARTRATE
     Dosage: OLPIDEM 10 MG ONCE DAILY (0-0-0-1), STOPPED
     Route: 048
  20. CODEINE [Concomitant]
     Active Substance: CODEINE
     Dosage: CODEINE AS RESCUE MEDICATION UP TO 3X/DAY, STOPPED; AS NECESSARY
     Route: 048
  21. ONDANSETRON [Concomitant]
     Active Substance: ONDANSETRON
     Dosage: ONDANSETRON 4 MG AS RESCUE MEDICATION UP TO 2X/DAY; AS NECESSARY
     Route: 048
  22. OXYCODONE HYDROCHLORIDE [Concomitant]
     Active Substance: OXYCODONE HYDROCHLORIDE
     Dosage: OXYNORM? (OXYCODONE) 5 MG AS RESCUE MEDICATION EVERY 2 HOURS; AS NECESSARY
     Route: 048
  23. SODIUM PICOSULFATE [Concomitant]
     Active Substance: SODIUM PICOSULFATE
     Dosage: LAXOBERON? (SODIUM PICOSULPHATE) 15 DROPS/DAY AS REQUIRED; AS NECESSARY
     Route: 048
  24. TRAZODONE HYDROCHLORIDE [Concomitant]
     Active Substance: TRAZODONE HYDROCHLORIDE
     Dosage: RITTICO? (TRAZODONE) 50 MG UP TO 1X/DAY, DURING HOSPITALISATION REDUCED TO ONCE DAILY (0-0-0-0.5)
     Route: 048
  25. LORAZEPAM [Concomitant]
     Active Substance: LORAZEPAM
     Dosage: TEMESTA? (LORAZEPAM) 1 MG AS RESCUE MEDICATION UP TO 2X/DAY
     Route: 048

REACTIONS (4)
  - Drug eruption [Recovered/Resolved]
  - Rash maculo-papular [Recovered/Resolved]
  - Pancytopenia [Recovered/Resolved]
  - Pyrexia [Recovered/Resolved]

NARRATIVE: CASE EVENT DATE: 20220304
